FAERS Safety Report 4884081-7 (Version None)
Quarter: 2006Q1

REPORT INFORMATION
  Report Type: 
  Country: None (occurrence: None)
  Receive Date: 20060117
  Receipt Date: 20060103
  Transmission Date: 20060701
  Serious: Yes (Hospitalization, Disabling)
  Sender: FDA-Public Use
  Company Number: 2006-003

PATIENT
  Age: 70 Year
  Sex: Female

DRUGS (3)
  1. CARBOPLATIN [Suspect]
     Indication: BREAST CANCER METASTATIC
  2. DOCETAXEL [Concomitant]
  3. TRASTUZUMAB [Concomitant]

REACTIONS (6)
  - ASTHENIA [None]
  - CEREBELLAR ATROPHY [None]
  - CEREBELLAR SYNDROME [None]
  - COGNITIVE DISORDER [None]
  - NAUSEA [None]
  - TREMOR [None]
